APPROVED DRUG PRODUCT: FLUOCINOLONE ACETONIDE
Active Ingredient: FLUOCINOLONE ACETONIDE
Strength: 0.01%
Dosage Form/Route: CREAM;TOPICAL
Application: A088499 | Product #001
Applicant: PHARMAFAIR INC
Approved: Aug 2, 1984 | RLD: No | RS: No | Type: DISCN